FAERS Safety Report 24390525 (Version 1)
Quarter: 2024Q4

REPORT INFORMATION
  Report Type: Spontaneous
  Country: GB (occurrence: GB)
  Receive Date: 20241003
  Receipt Date: 20241003
  Transmission Date: 20250115
  Serious: Yes (Other)
  Sender: CELLTRION
  Company Number: GB-BAXTER-2024BAX024201

PATIENT

DRUGS (1)
  1. INFLIXIMAB [Suspect]
     Active Substance: INFLIXIMAB
     Indication: Crohn^s disease
     Dosage: 330 MG, 6 WEEKLY (REMSIMA 1 MG BAXTER)
     Route: 042

REACTIONS (4)
  - Crohn^s disease [Unknown]
  - Lymphadenitis [Unknown]
  - Treatment delayed [Unknown]
  - Intentional product use issue [Unknown]
